FAERS Safety Report 6171496-2 (Version None)
Quarter: 2009Q2

REPORT INFORMATION
  Report Type: 
  Country: None (occurrence: None)
  Receive Date: 20090429
  Receipt Date: 20090423
  Transmission Date: 20091009
  Serious: Yes (Death, Other)
  Sender: FDA-Public Use
  Company Number: DE-AMGEN-UK320041

PATIENT
  Sex: Male

DRUGS (1)
  1. VECTIBIX [Suspect]
     Indication: COLORECTAL CANCER
     Route: 065
     Dates: start: 20081105

REACTIONS (3)
  - DEATH [None]
  - DERMATITIS ACNEIFORM [None]
  - FOLLICULITIS [None]
